FAERS Safety Report 17159222 (Version 1)
Quarter: 2019Q4

REPORT INFORMATION
  Report Type: Spontaneous
  Country: US (occurrence: US)
  Receive Date: 20191215
  Receipt Date: 20191215
  Transmission Date: 20200122
  Serious: Yes (Hospitalization)
  Sender: FDA-Public Use
  Company Number: None

PATIENT
  Age: 72 Year
  Sex: Female
  Weight: 71.1 kg

DRUGS (12)
  1. SODIUM POLYSTYRENE SULFONATE, USP POWDER 454 G (1 LB) [Suspect]
     Active Substance: SODIUM POLYSTYRENE SULFONATE
     Indication: BLOOD POTASSIUM INCREASED
     Dosage: ?          QUANTITY:4 TEASPOON(S);?
     Route: 048
     Dates: start: 20191211, end: 20191211
  2. 20 MG. LUTEIN [Concomitant]
  3. ATORVASTATIN 40 MG. TABLET ONCE A DAY [Concomitant]
  4. RANITIDINE 150 MG. TABLET ONCE A DAY [Concomitant]
  5. CITRUCEL FIBER THERAPY 2 TABLESPOONS WITH 8 OZ. WATER [Concomitant]
  6. 250 MG. MAGNESIUM [Concomitant]
  7. 25 MG. BENADRYL [Concomitant]
  8. 100 MG. COENZYME Q-10 [Concomitant]
  9. CITRACAL 630 MG. + VIT. D3 500 IU [Concomitant]
  10. SODIUM POLYSTYRENE SULFONATE, USP POWDER 454 G (1 LB) [Suspect]
     Active Substance: SODIUM POLYSTYRENE SULFONATE
     Indication: HYPOALDOSTERONISM
     Dosage: ?          QUANTITY:4 TEASPOON(S);?
     Route: 048
     Dates: start: 20191211, end: 20191211
  11. 500MG. VITAMIN C [Concomitant]
  12. 1000 MG. FLAXSEED OIL [Concomitant]

REACTIONS (3)
  - Palpitations [None]
  - Heart rate increased [None]
  - Blood pressure increased [None]

NARRATIVE: CASE EVENT DATE: 20191211
